FAERS Safety Report 7382973-0 (Version None)
Quarter: 2011Q1

REPORT INFORMATION
  Report Type: 
  Country: None (occurrence: None)
  Receive Date: 20110330
  Receipt Date: 20110317
  Transmission Date: 20110831
  Serious: Yes (Other)
  Sender: FDA-Public Use
  Company Number: AU-RANBAXY-2011RR-42925

PATIENT
  Sex: Female

DRUGS (4)
  1. METFORMIN HYDROCHLORIDE [Concomitant]
     Indication: PRODUCT USED FOR UNKNOWN INDICATION
     Route: 065
  2. ASTRIX 100 [Concomitant]
     Indication: PRODUCT USED FOR UNKNOWN INDICATION
     Route: 065
  3. FENOFIBRATE [Suspect]
     Indication: METABOLIC DISORDER
     Dosage: 145 MG, UNK
     Route: 048
     Dates: start: 20080903, end: 20100601
  4. ATACAND PLUS 16/12.5 [Concomitant]
     Indication: PRODUCT USED FOR UNKNOWN INDICATION
     Route: 065

REACTIONS (4)
  - HEPATIC STEATOSIS [None]
  - WEIGHT DECREASED [None]
  - ANTINUCLEAR ANTIBODY INCREASED [None]
  - LIVER INJURY [None]
